FAERS Safety Report 24033791 (Version 1)
Quarter: 2024Q3

REPORT INFORMATION
  Report Type: Spontaneous
  Country: VN (occurrence: VN)
  Receive Date: 20240701
  Receipt Date: 20240701
  Transmission Date: 20241017
  Serious: Yes (Life-Threatening)
  Sender: AMGEN
  Company Number: VN-AMGEN-VNMSP2024126053

PATIENT
  Age: 66 Year
  Sex: Female

DRUGS (3)
  1. BEVACIZUMAB [Suspect]
     Active Substance: BEVACIZUMAB
     Indication: Colorectal cancer metastatic
     Dosage: UNK
     Route: 042
     Dates: start: 202201
  2. CAPECITABINE [Concomitant]
     Active Substance: CAPECITABINE
     Indication: Colorectal cancer metastatic
     Dosage: UNK
     Route: 048
     Dates: start: 202201
  3. ZOLEDRONIC ACID [Concomitant]
     Active Substance: ZOLEDRONIC ACID
     Indication: Metastases to bone
     Dosage: UNK
     Route: 042
     Dates: start: 202201

REACTIONS (1)
  - Colorectal cancer metastatic [Unknown]

NARRATIVE: CASE EVENT DATE: 20230101
